FAERS Safety Report 6623808-0 (Version None)
Quarter: 2010Q1

REPORT INFORMATION
  Report Type: 
  Country: None (occurrence: None)
  Receive Date: 20100310
  Receipt Date: 20100225
  Transmission Date: 20100710
  Serious: Yes (Other)
  Sender: FDA-Public Use
  Company Number: PHEH2008US08907

PATIENT
  Sex: Female

DRUGS (30)
  1. AREDIA [Suspect]
     Dosage: UNK
     Dates: start: 19980818, end: 20011114
  2. ZOMETA [Suspect]
     Dosage: UNK
     Dates: start: 20011114, end: 20070113
  3. PERCOCET [Concomitant]
  4. AVELOX [Concomitant]
  5. FLAGYL [Concomitant]
     Dosage: 500 MG, QID
  6. RADIATION [Concomitant]
  7. PHENERGAN ^AVENTIS PHARMA^ [Concomitant]
  8. FASLODEX [Concomitant]
  9. FULVESTRANT [Concomitant]
     Dosage: UNK
  10. VIOXX [Concomitant]
     Dosage: UNK
  11. ARIMIDEX [Concomitant]
     Dosage: UNK
  12. MEGACE [Concomitant]
     Dosage: UNK
  13. FLONASE [Concomitant]
     Dosage: UNK
  14. BACTRIM [Concomitant]
     Dosage: UNK
  15. NOLVADEX [Concomitant]
     Dosage: 10 MG 2 TIMES DAILY
  16. ZITHROMAX [Concomitant]
     Dosage: UNK
  17. ZYRTEC [Concomitant]
     Dosage: UNK
  18. METOPROLOL [Concomitant]
     Dosage: UNK
  19. NEXIUM [Concomitant]
  20. NEURONTIN [Concomitant]
     Dosage: UNK
  21. DURAGESIC-100 [Concomitant]
     Dosage: UNK
  22. ALDACTONE [Concomitant]
     Dosage: UNK
  23. AMBIEN [Concomitant]
     Dosage: UNK
  24. TAXOTERE [Concomitant]
     Dosage: UNK
  25. LASIX [Concomitant]
     Dosage: UNK
  26. ZOFRAN [Concomitant]
     Dosage: UNK
  27. LEVAQUIN [Concomitant]
     Dosage: UNK
  28. PAXIL [Concomitant]
     Dosage: UNK
  29. DECADRON [Concomitant]
     Dosage: UNK
  30. KYTRIL [Concomitant]
     Dosage: UNK

REACTIONS (32)
  - ANHEDONIA [None]
  - ANXIETY [None]
  - ARTHROPATHY [None]
  - BONE DEBRIDEMENT [None]
  - BONE DISORDER [None]
  - CARDIAC FAILURE CONGESTIVE [None]
  - CENTRAL VENOUS CATHETERISATION [None]
  - CHRONIC OBSTRUCTIVE PULMONARY DISEASE [None]
  - CRANIOTOMY [None]
  - DISABILITY [None]
  - DYSPNOEA [None]
  - GINGIVAL SWELLING [None]
  - HIATUS HERNIA [None]
  - HYPERTENSION [None]
  - INFARCTION [None]
  - INJURY [None]
  - ISCHAEMIA [None]
  - METASTASES TO BONE [None]
  - METASTASES TO LIVER [None]
  - METASTASES TO LUNG [None]
  - NASAL SEPTUM DEVIATION [None]
  - NEUROPATHY PERIPHERAL [None]
  - OSTEOMYELITIS [None]
  - OSTEONECROSIS [None]
  - PAIN [None]
  - PERIODONTAL OPERATION [None]
  - PLEURAL EFFUSION [None]
  - RADIOTHERAPY [None]
  - SINUS HEADACHE [None]
  - SINUSITIS [None]
  - THROMBOCYTOPENIA [None]
  - TOOTH ABSCESS [None]
